FAERS Safety Report 25359848 (Version 1)
Quarter: 2025Q2

REPORT INFORMATION
  Report Type: Spontaneous
  Country: AU (occurrence: AU)
  Receive Date: 20250526
  Receipt Date: 20250526
  Transmission Date: 20250716
  Serious: Yes (Other)
  Sender: SANDOZ
  Company Number: AU-TGA-0000836681

PATIENT
  Age: 60 Year
  Sex: Female

DRUGS (4)
  1. ESTRADIOL [Suspect]
     Active Substance: ESTRADIOL
     Indication: Hormone replacement therapy
     Dosage: 37.5 UG, QD
     Route: 062
  2. ESTRADIOL [Suspect]
     Active Substance: ESTRADIOL
     Indication: Postmenopause
  3. PROMETRIUM [Suspect]
     Active Substance: PROGESTERONE
     Indication: Hormone replacement therapy
     Route: 065
  4. PROMETRIUM [Suspect]
     Active Substance: PROGESTERONE
     Indication: Postmenopause

REACTIONS (1)
  - Postmenopausal haemorrhage [Unknown]
